FAERS Safety Report 5122485-8 (Version None)
Quarter: 2006Q4

REPORT INFORMATION
  Report Type: 
  Country: None (occurrence: None)
  Receive Date: 20061004
  Receipt Date: 20060926
  Transmission Date: 20070319
  Serious: Yes (Death, Life-Threatening, Hospitalization, Disabling)
  Sender: FDA-Public Use
  Company Number: 430010N06USA

PATIENT
  Age: 54 Year
  Sex: Male
  Weight: 85.27 kg

DRUGS (5)
  1. NOVANTRONE [Suspect]
     Indication: MULTIPLE SCLEROSIS
     Dosage: 12 MG, 1 IN 3 MONTHS, INTRAVENOUS (NOT OTHERWISE SPECIFIED)
     Route: 042
     Dates: start: 20010920, end: 20051222
  2. INTERFERON BETA [Concomitant]
  3. PREDNISONE TAB [Concomitant]
  4. METHYLPREDNISOLONE [Concomitant]
  5. DEXAMETHASONE TAB [Concomitant]

REACTIONS (2)
  - CAROTID ARTERY OCCLUSION [None]
  - CEREBROVASCULAR ACCIDENT [None]
